FAERS Safety Report 9922195 (Version 12)
Quarter: 2014Q2

REPORT INFORMATION
  Report Type: Spontaneous
  Country: IT (occurrence: IT)
  Receive Date: 20140225
  Receipt Date: 20140530
  Transmission Date: 20141212
  Serious: Yes (Life-Threatening, Hospitalization, Other)
  Sender: FDA-Public Use
  Company Number: IT-SA-2014SA020665

PATIENT
  Age: 8 Year
  Sex: Female

DRUGS (4)
  1. MYOZYME [Suspect]
     Indication: GLYCOGEN STORAGE DISEASE TYPE II
     Dosage: MYOZYME: 50 MG VIAL/20 ML
     Route: 042
     Dates: start: 20060427
  2. ZAVESCA [Concomitant]
     Dosage: 12 HOUR BEFORE THE INFUSION
     Dates: start: 20110727
  3. ZAVESCA [Concomitant]
     Dosage: 1 HOUR BEFORE THE INFUSION
     Dates: start: 20110727
  4. ZAVESCA [Concomitant]
     Dosage: 4 HOUR AND 12 HOUR AFTER THE INFUSION.
     Dates: start: 20110727

REACTIONS (6)
  - Respiratory failure [Recovering/Resolving]
  - Respiratory disorder [Recovering/Resolving]
  - Movement disorder [Recovering/Resolving]
  - Bronchopneumonia [Recovering/Resolving]
  - Disease progression [Recovering/Resolving]
  - Therapeutic response decreased [Unknown]
